FAERS Safety Report 25014080 (Version 2)
Quarter: 2025Q1

REPORT INFORMATION
  Report Type: Spontaneous
  Country: JP (occurrence: JP)
  Receive Date: 20250226
  Receipt Date: 20250314
  Transmission Date: 20250408
  Serious: Yes (Other)
  Sender: ALEXION PHARMACEUTICALS
  Company Number: JP-ASTELLAS-2025-AER-009750

PATIENT
  Age: 93 Year

DRUGS (3)
  1. SEROQUEL [Suspect]
     Active Substance: QUETIAPINE FUMARATE
     Indication: Sedation
  2. RISPERIDONE [Suspect]
     Active Substance: RISPERIDONE
     Indication: Product used for unknown indication
     Dosage: 1MG 3 TABLETS 3 TIMES A DAY
  3. ARIPIPRAZOLE [Suspect]
     Active Substance: ARIPIPRAZOLE
     Indication: Product used for unknown indication
     Dosage: 3 TABLETS ONCE AFTER DINNER
     Route: 065

REACTIONS (4)
  - Dementia [Unknown]
  - Akathisia [Unknown]
  - Dyskinesia [Unknown]
  - Off label use [Unknown]
